FAERS Safety Report 7799587-0 (Version None)
Quarter: 2011Q4

REPORT INFORMATION
  Report Type: 
  Country: None (occurrence: None)
  Receive Date: 20111006
  Receipt Date: 20110929
  Transmission Date: 20120403
  Serious: Yes (Hospitalization)
  Sender: FDA-Public Use
  Company Number: IT-AMGEN-ITASP2011045085

PATIENT
  Age: 63 Year
  Sex: Female

DRUGS (5)
  1. PREDNISONE [Concomitant]
     Dosage: UNK
  2. MYCOPHENOLATE MOFETIL [Concomitant]
  3. ARANESP [Suspect]
     Indication: ANAEMIA
     Dosage: 60 MUG, QWK
     Route: 058
     Dates: start: 20110824, end: 20110831
  4. MYFORTIC [Concomitant]
  5. AUGMENTIN '125' [Concomitant]

REACTIONS (1)
  - HYPOPLASTIC ANAEMIA [None]
